FAERS Safety Report 23605314 (Version 1)
Quarter: 2024Q1

REPORT INFORMATION
  Report Type: Spontaneous
  Country: US (occurrence: None)
  Receive Date: 20240306
  Receipt Date: 20240306
  Transmission Date: 20240410
  Serious: Yes (Hospitalization)
  Sender: FDA-Public Use
  Company Number: None

PATIENT
  Age: 77 Year
  Sex: Female

DRUGS (2)
  1. OPSUMIT [Suspect]
     Active Substance: MACITENTAN
     Indication: Heritable pulmonary arterial hypertension
     Dosage: FREQUENCY : DAILY;?
     Route: 048
     Dates: start: 20240209
  2. OPSUMIT [Suspect]
     Active Substance: MACITENTAN
     Indication: Pulmonary arterial hypertension

REACTIONS (6)
  - Right ventricular failure [None]
  - Chronic obstructive pulmonary disease [None]
  - Pulmonary hypertension [None]
  - Pneumonia [None]
  - Acute respiratory failure [None]
  - Cardiac failure congestive [None]

NARRATIVE: CASE EVENT DATE: 20240222
